FAERS Safety Report 13780071 (Version 1)
Quarter: 2017Q3

REPORT INFORMATION
  Report Type: Spontaneous
  Country: CN (occurrence: CN)
  Receive Date: 20170724
  Receipt Date: 20170724
  Transmission Date: 20171127
  Serious: Yes (Other)
  Sender: FDA-Public Use
  Company Number: CN-ROCHE-1963832

PATIENT
  Age: 59 Year
  Sex: Male
  Weight: 76 kg

DRUGS (5)
  1. SODIUM CHLORIDE. [Concomitant]
     Active Substance: SODIUM CHLORIDE
     Route: 065
  2. SULFAMETHOXAZOLE [Concomitant]
     Active Substance: SULFAMETHOXAZOLE
     Route: 048
  3. ROCEPHIN [Suspect]
     Active Substance: CEFTRIAXONE SODIUM
     Indication: BRAIN ABSCESS
     Route: 041
     Dates: start: 20170331, end: 20170401
  4. ACEGLUTAMIDE [Concomitant]
     Active Substance: ACEGLUTAMIDE
     Indication: BRAIN ABSCESS
     Route: 041
     Dates: start: 20170401, end: 20170408
  5. ORNIDAZOLE [Concomitant]
     Active Substance: ORNIDAZOLE
     Route: 041

REACTIONS (2)
  - Chills [Recovered/Resolved]
  - Hyperpyrexia [Recovered/Resolved]

NARRATIVE: CASE EVENT DATE: 20170401
